FAERS Safety Report 10210701 (Version 1)
Quarter: 2014Q2

REPORT INFORMATION
  Report Type: Spontaneous
  Country: DE (occurrence: DE)
  Receive Date: 20140602
  Receipt Date: 20140602
  Transmission Date: 20141212
  Serious: Yes (Other)
  Sender: FDA-Public Use
  Company Number: DE-MYLANLABS-2014S1011855

PATIENT
  Age: 1 Day
  Sex: Male
  Weight: 2.57 kg

DRUGS (4)
  1. AZATHIOPRINE [Suspect]
     Indication: CROHN^S DISEASE
     Dosage: 125 [MG/D ]
     Route: 064
     Dates: start: 20120512, end: 20130123
  2. LEVOTHYROXIN [Concomitant]
     Indication: HYPOTHYROIDISM
     Dosage: 75 [?G/D ]
     Route: 064
     Dates: start: 20120512, end: 20130123
  3. FOLIO /06866801/ [Concomitant]
     Indication: PROPHYLAXIS OF NEURAL TUBE DEFECT
     Dosage: 0.4 [MG/D ]
     Route: 064
     Dates: start: 20120730, end: 20130123
  4. RHOPHYLAC [Concomitant]
     Indication: RHESUS INCOMPATIBILITY
     Route: 064
     Dates: start: 20121204, end: 20121204

REACTIONS (3)
  - Premature baby [Unknown]
  - Cerebral haemorrhage [Recovered/Resolved with Sequelae]
  - Foetal exposure during pregnancy [Unknown]
